FAERS Safety Report 12864219 (Version 1)
Quarter: 2016Q4

REPORT INFORMATION
  Report Type: Spontaneous
  Country: CN (occurrence: CN)
  Receive Date: 20161020
  Receipt Date: 20161020
  Transmission Date: 20170207
  Serious: Yes (Hospitalization, Other)
  Sender: FDA-Public Use
  Company Number: CN-BAXTER-2016BAX052373

PATIENT
  Age: 48 Year
  Sex: Female
  Weight: 60 kg

DRUGS (36)
  1. ENDOXAN [Suspect]
     Active Substance: CYCLOPHOSPHAMIDE
     Indication: BREAST CANCER
     Dosage: DAY 1
     Route: 041
     Dates: start: 20160503, end: 20160503
  2. 5% GLUCOSE  INJECTION [Suspect]
     Active Substance: DEXTROSE
     Indication: MEDICATION DILUTION
     Dosage: SOLVENT FOR TROPISETRON HYDROCHLORIDE
     Route: 041
     Dates: start: 20160503, end: 20160506
  3. 0.9% SODIUM CHLORIDE INJECTION [Suspect]
     Active Substance: SODIUM CHLORIDE
     Dosage: SOLVENT FOR DOCETAXEL INJECTION 80 MG, DOSE RE-INTRODUCED
     Route: 041
  4. DOCETAXEL. [Suspect]
     Active Substance: DOCETAXEL
     Indication: BREAST CANCER
     Dosage: DAY 2
     Route: 041
     Dates: start: 20160504, end: 20160504
  5. DOCETAXEL. [Suspect]
     Active Substance: DOCETAXEL
     Dosage: DOSE RE-INTRODUCED
     Route: 041
  6. DEXAMETHASONE SODIUM PHOSPHATE. [Suspect]
     Active Substance: DEXAMETHASONE SODIUM PHOSPHATE
     Dosage: DOSE RE-INTRODUCED
     Route: 042
  7. TROPISETRON HYDROCHLORIDE [Suspect]
     Active Substance: TROPISETRON HYDROCHLORIDE
     Indication: VOMITING
     Route: 041
     Dates: start: 20160503, end: 20160506
  8. TROPISETRON HYDROCHLORIDE [Suspect]
     Active Substance: TROPISETRON HYDROCHLORIDE
     Dosage: DOSE RE-INTRODUCED
     Route: 041
  9. RANITIDINE HYDROCHLORIDE. [Suspect]
     Active Substance: RANITIDINE HYDROCHLORIDE
     Indication: PROPHYLAXIS
     Route: 048
     Dates: start: 20160503, end: 20160504
  10. RANITIDINE HYDROCHLORIDE. [Suspect]
     Active Substance: RANITIDINE HYDROCHLORIDE
     Dosage: DOSE RE-INTRODUCED
     Route: 048
  11. 0.9% SODIUM CHLORIDE INJECTION [Suspect]
     Active Substance: SODIUM CHLORIDE
     Dosage: SOLVENT FOR EPIRUBICIN HYDROCHLORIDE, DOSE RE-INTRODUCED
     Route: 041
  12. 0.9% SODIUM CHLORIDE INJECTION [Suspect]
     Active Substance: SODIUM CHLORIDE
     Dosage: SOLVENT FOR DOCETAXEL INJECTION 40 MG, DOSE RE-INTRODUCED
     Route: 041
  13. 5% GLUCOSE  INJECTION [Suspect]
     Active Substance: DEXTROSE
     Dosage: SOLVENT FOR TROPISETRON HYDROCHLORIDE, DOSE REINTRODUCED
     Route: 041
  14. DOCETAXEL. [Suspect]
     Active Substance: DOCETAXEL
     Dosage: DAY 2
     Route: 041
     Dates: start: 20160504, end: 20160504
  15. PHARMORUBICIN [Suspect]
     Active Substance: EPIRUBICIN
     Indication: BREAST CANCER
     Dosage: DAY 1
     Route: 041
     Dates: start: 20160503, end: 20160503
  16. PROMETHAZINE HYDROCHLORIDE. [Suspect]
     Active Substance: PROMETHAZINE HYDROCHLORIDE
     Dosage: DOSE RE-INTRODUCED
     Route: 030
  17. DEXAMETHASONE ACETATE [Suspect]
     Active Substance: DEXAMETHASONE ACETATE
     Indication: ALLERGY PROPHYLAXIS
     Route: 048
     Dates: start: 20160503, end: 20160504
  18. DEXAMETHASONE ACETATE [Suspect]
     Active Substance: DEXAMETHASONE ACETATE
     Dosage: DOSE RE-INTRODUCED
     Route: 048
  19. 0.9% SODIUM CHLORIDE INJECTION [Suspect]
     Active Substance: SODIUM CHLORIDE
     Indication: MEDICATION DILUTION
     Dosage: SOLVENT FOR LANSOPRAZOLE
     Route: 041
     Dates: start: 20160503, end: 20160506
  20. 0.9% SODIUM CHLORIDE INJECTION [Suspect]
     Active Substance: SODIUM CHLORIDE
     Dosage: SOLVENT FOR EPIRUBICIN HYDROCHLORIDE
     Route: 041
     Dates: start: 20160503, end: 20160503
  21. 0.9% SODIUM CHLORIDE INJECTION [Suspect]
     Active Substance: SODIUM CHLORIDE
     Dosage: SOLVENT FOR DOCETAXEL INJECTION 80 MG
     Route: 041
     Dates: start: 20160504, end: 20160504
  22. 0.9% SODIUM CHLORIDE INJECTION [Suspect]
     Active Substance: SODIUM CHLORIDE
     Dosage: SOLVENT FOR LANSOPRAZOLE, DOSE RE-INTRODUCED
     Route: 041
  23. 0.9% SODIUM CHLORIDE INJECTION [Suspect]
     Active Substance: SODIUM CHLORIDE
     Dosage: SOLVENT FOR CYCLOPHOSPHAMIDE, DOSE RE-INTRODUCED
     Route: 041
  24. PROMETHAZINE HYDROCHLORIDE. [Suspect]
     Active Substance: PROMETHAZINE HYDROCHLORIDE
     Indication: VOMITING
     Route: 030
     Dates: start: 20160503, end: 20160503
  25. 0.9% SODIUM CHLORIDE INJECTION [Suspect]
     Active Substance: SODIUM CHLORIDE
     Dosage: SOLVENT OR DOCETAXEL INJECTION 40 MG
     Route: 041
     Dates: start: 20160504, end: 20160504
  26. 5% GLUCOSE  INJECTION [Suspect]
     Active Substance: DEXTROSE
     Dosage: SOLVENT FOR DEXRAZOXANE
     Route: 041
     Dates: start: 20160503, end: 20160503
  27. 5% GLUCOSE  INJECTION [Suspect]
     Active Substance: DEXTROSE
     Dosage: SOLVENT FOR DEXRAZOXANE, DOSE REINTRODUCED
     Route: 041
  28. PHARMORUBICIN [Suspect]
     Active Substance: EPIRUBICIN
     Dosage: DOSE RE-INTRODUCED
     Route: 041
  29. DEXRAZOXANE. [Suspect]
     Active Substance: DEXRAZOXANE
     Indication: PROPHYLAXIS
     Dosage: DAY 1
     Route: 041
     Dates: start: 20160503, end: 20160503
  30. DEXRAZOXANE. [Suspect]
     Active Substance: DEXRAZOXANE
     Dosage: DOSE RE-INTRODUCED
     Route: 041
  31. LANSOPRAZOLE. [Suspect]
     Active Substance: LANSOPRAZOLE
     Indication: PROPHYLAXIS
     Route: 041
     Dates: start: 20160503, end: 20160506
  32. LANSOPRAZOLE. [Suspect]
     Active Substance: LANSOPRAZOLE
     Dosage: DOSE RE-INTRODUCED
     Route: 041
  33. RHUG-CSF [Suspect]
     Active Substance: GRANULOCYTE COLONY-STIMULATING FACTOR NOS
     Indication: BONE MARROW FAILURE
     Route: 058
     Dates: start: 20160511
  34. ENDOXAN [Suspect]
     Active Substance: CYCLOPHOSPHAMIDE
     Dosage: DOSE RE-INTRODUCED
     Route: 041
  35. 0.9% SODIUM CHLORIDE INJECTION [Suspect]
     Active Substance: SODIUM CHLORIDE
     Dosage: SOLVENT FOR CYCLOPHOSPHAMIDE
     Route: 041
     Dates: start: 20160503, end: 20160503
  36. DEXAMETHASONE SODIUM PHOSPHATE. [Suspect]
     Active Substance: DEXAMETHASONE SODIUM PHOSPHATE
     Indication: ALLERGY PROPHYLAXIS
     Route: 042
     Dates: start: 20160503, end: 20160503

REACTIONS (3)
  - Pyrexia [Recovered/Resolved]
  - Bone marrow failure [Recovering/Resolving]
  - Decreased appetite [Unknown]

NARRATIVE: CASE EVENT DATE: 20160511
